FAERS Safety Report 8357303-8 (Version None)
Quarter: 2012Q2

REPORT INFORMATION
  Report Type: 
  Country: None (occurrence: None)
  Receive Date: 20120514
  Receipt Date: 20120510
  Transmission Date: 20120825
  Serious: Yes (Hospitalization, Other)
  Sender: FDA-Public Use
  Company Number: PHEH2012US006598

PATIENT
  Sex: Female
  Weight: 77 kg

DRUGS (17)
  1. GILENYA [Suspect]
     Indication: RELAPSING-REMITTING MULTIPLE SCLEROSIS
     Dosage: 0.5 MG, QD
     Route: 048
     Dates: start: 20120322
  2. NEURONTIN [Concomitant]
     Dosage: 300 MG, BID
  3. ZYPREXA ZYDIS [Concomitant]
     Dosage: 0.5 DF, QD
  4. OLOPATADINE [Concomitant]
     Indication: SEASONAL ALLERGY
     Dosage: 2 DF, BID
     Route: 045
  5. ALBUTEROL [Concomitant]
     Dosage: 2 DF, PRN
  6. BACLOFEN [Concomitant]
     Dosage: 10 MG, TID
  7. LITHIUM CARBONATE [Concomitant]
     Dosage: 300 MG, BID
     Route: 048
  8. MULTI-VITAMINS [Concomitant]
     Dosage: 1 DF, BID
  9. IBUPROFEN [Concomitant]
     Dosage: 800 MG, PRN
  10. PROZAC [Concomitant]
     Dosage: 40 MG, QD EVERY PM
  11. HERBS AND PRUNE EXTRACT [Concomitant]
     Dosage: UNK UKN, DAILY EVERY PM.
  12. AMBIEN [Concomitant]
     Dosage: 20 MG, PRN
     Route: 048
  13. FISH OIL [Concomitant]
     Dosage: 2 DF, BID
     Route: 048
  14. NUVIGIL [Concomitant]
     Dosage: 325 MG, DAILY
     Route: 048
  15. TRILEPTAL [Concomitant]
     Dosage: 300 MG, BID
  16. VITAMIN D [Concomitant]
     Dosage: 5000 IU, QD
  17. LAMICTAL [Concomitant]
     Dosage: 250 MG, QD, EVERY PM.

REACTIONS (6)
  - BLOOD PRESSURE DECREASED [None]
  - GRAND MAL CONVULSION [None]
  - TREMOR [None]
  - VENTRICULAR EXTRASYSTOLES [None]
  - DIZZINESS [None]
  - PETIT MAL EPILEPSY [None]
